FAERS Safety Report 4316272-8 (Version None)
Quarter: 2004Q1

REPORT INFORMATION
  Report Type: 
  Country: None (occurrence: None)
  Receive Date: 20040310
  Receipt Date: 20030424
  Transmission Date: 20041129
  Serious: Yes (Other)
  Sender: FDA-Public Use
  Company Number: HQWYE949929APR03

PATIENT
  Age: 42 Year
  Sex: Male
  Weight: 118.04 kg

DRUGS (5)
  1. PROTONIX [Suspect]
     Indication: GASTROOESOPHAGEAL REFLUX DISEASE
     Dosage: 40 MG 1 X PER DAY, ORAL
     Route: 048
     Dates: start: 20030401, end: 20030422
  2. MULTIVITAMIN [Concomitant]
  3. GLUCOSAMINE [Concomitant]
  4. BETACAROTENE [Concomitant]
  5. ZINC [Concomitant]

REACTIONS (3)
  - PARAESTHESIA [None]
  - PHOTOSENSITIVITY REACTION [None]
  - PRURITUS [None]
